FAERS Safety Report 10146112 (Version 1)
Quarter: 2014Q2

REPORT INFORMATION
  Report Type: Spontaneous
  Country: US (occurrence: US)
  Receive Date: 20140501
  Receipt Date: 20140501
  Transmission Date: 20141212
  Serious: Yes (Other)
  Sender: FDA-Public Use
  Company Number: PHHY2014US052777

PATIENT
  Age: 62 Year
  Sex: Female
  Weight: 71.2 kg

DRUGS (28)
  1. LOPRESSOR [Suspect]
     Indication: ATRIAL FIBRILLATION
     Dosage: UNK DF, UNK
     Route: 048
     Dates: start: 2004
  2. AMPYRA [Suspect]
     Indication: GAIT DISTURBANCE
     Dosage: 10 MG, EVERY 12 HOURS (TWICE DAILY)
     Route: 048
     Dates: start: 2010
  3. SOTALOL [Suspect]
     Indication: ATRIAL FIBRILLATION
     Dosage: UNK
     Route: 048
     Dates: start: 2012, end: 201401
  4. SOTALOL [Suspect]
     Indication: VENTRICULAR EXTRASYSTOLES
  5. ARICEPT [Concomitant]
     Dosage: 5 MG, AT BEDTIME
  6. ASPIRIN [Concomitant]
     Dosage: 325 MG, QD
  7. BACLOFEN [Concomitant]
     Dosage: 20 MG, IN MORNING AND AFTERNOON, 80 MG IN EVENING
  8. DETROL LA [Concomitant]
     Dosage: 4 MG, 1-2 TIMES DAILY
  9. SYNTHROID [Concomitant]
     Dosage: 0.125 MG, QD
  10. LIPITOR [Concomitant]
     Dosage: 20 MG, QD
  11. NEURONTIN [Concomitant]
     Dosage: 600 MG, THREE TIMES DAILY
  12. NEXIUM//ESOMEPRAZOLE MAGNESIUM [Concomitant]
     Dosage: 40 MG, TWICE DAILY BEFORE MEALS
  13. NUVIGIL [Concomitant]
     Dosage: 250 MG, QD
  14. TYSABRI [Concomitant]
     Dosage: 1 DF (300/5 ML), QMO
  15. ZOLOFT [Concomitant]
     Dosage: 100 MG, BID
  16. MULTI VITAMIN, IRON + FLUORIDE SUPPLEMENTAL [Concomitant]
     Dosage: UNK, QD
  17. FISH OIL [Concomitant]
     Dosage: UNK UKN, IN THE AFTERNOON AND EVENING
  18. VITAMIN B6 [Concomitant]
     Dosage: UNK UKN, QD
  19. VITAMIN B12 [Concomitant]
     Dosage: UNK UKN, QD
  20. CALCIUM CITRATE WITH VITAMIN D3 [Concomitant]
     Dosage: UKN, QD
  21. ABTEI BIOTIN [Concomitant]
     Dosage: UNK, QD
  22. LYSINE [Concomitant]
     Dosage: UKN, QD
  23. AMOXICILLIN [Concomitant]
     Indication: DENTAL DISORDER PROPHYLAXIS
     Dosage: UNK
  24. INFLUENZA VACCINE [Concomitant]
     Dosage: UNK, ANNUALLY
  25. COMBIVENT [Concomitant]
     Dosage: UNK
  26. NAPROSYN [Concomitant]
     Dosage: 250 MG, UNK
  27. DOXYCYCLINE [Concomitant]
     Dosage: 100 MG, UNK
  28. FLONASE [Concomitant]
     Dosage: 0.05 %, UNK

REACTIONS (6)
  - Atrial fibrillation [Recovering/Resolving]
  - Chest pain [Unknown]
  - Heart rate decreased [Recovered/Resolved]
  - Ventricular extrasystoles [Unknown]
  - Hypotension [Recovered/Resolved]
  - Blood pressure increased [Unknown]
